FAERS Safety Report 19559929 (Version 1)
Quarter: 2021Q3

REPORT INFORMATION
  Report Type: Other
  Country: CN (occurrence: CN)
  Receive Date: 20210716
  Receipt Date: 20210716
  Transmission Date: 20211014
  Serious: Yes (Other)
  Sender: FDA-Public Use
  Company Number: CN-ROCHE-2749518

PATIENT
  Age: 46 Year
  Sex: Male

DRUGS (10)
  1. EPALRESTAT [Concomitant]
     Active Substance: EPALRESTAT
     Indication: DIABETIC RETINAL OEDEMA
     Route: 048
     Dates: start: 20191024
  2. EPALRESTAT [Concomitant]
     Active Substance: EPALRESTAT
     Indication: DIABETIC NEUROPATHY
  3. RANIBIZUMAB. [Suspect]
     Active Substance: RANIBIZUMAB
     Indication: DIABETIC RETINAL OEDEMA
     Route: 065
     Dates: start: 20200424
  4. CITICOLINE SODIUM [Concomitant]
     Active Substance: CITICOLINE SODIUM
     Indication: DIABETIC RETINAL OEDEMA
     Dosage: 1 DF
     Route: 048
     Dates: start: 20201217
  5. RANIBIZUMAB. [Suspect]
     Active Substance: RANIBIZUMAB
     Route: 065
     Dates: start: 20201113
  6. ESCULIN [Concomitant]
     Active Substance: ESCULIN
     Indication: DIABETIC RETINAL OEDEMA
     Dosage: 1 DROP
     Route: 031
  7. HYALURONIC ACID SODIUM [Concomitant]
     Indication: DIABETIC RETINAL OEDEMA
     Dosage: 1 DROP
     Route: 031
     Dates: start: 20180830
  8. RANIBIZUMAB. [Suspect]
     Active Substance: RANIBIZUMAB
     Route: 065
     Dates: start: 20200529
  9. DOBESILATE CALCIUM [Concomitant]
     Indication: DIABETIC RETINAL OEDEMA
     Dosage: 2 DF
     Route: 048
     Dates: start: 20201217
  10. RANIBIZUMAB. [Suspect]
     Active Substance: RANIBIZUMAB
     Route: 065
     Dates: start: 20200710

REACTIONS (2)
  - Diabetes mellitus [Recovered/Resolved]
  - Cataract [Recovered/Resolved]

NARRATIVE: CASE EVENT DATE: 20200424
